FAERS Safety Report 17599315 (Version 2)
Quarter: 2020Q2

REPORT INFORMATION
  Report Type: Spontaneous
  Country: CN (occurrence: CN)
  Receive Date: 20200330
  Receipt Date: 20200408
  Transmission Date: 20200713
  Serious: Yes (Life-Threatening, Other)
  Sender: FDA-Public Use
  Company Number: CN-009507513-2003CHN009819

PATIENT
  Age: 68 Year
  Sex: Male

DRUGS (1)
  1. KEYTRUDA [Suspect]
     Active Substance: PEMBROLIZUMAB
     Indication: SMALL CELL LUNG CANCER
     Dosage: 200 MILLIGRAM, Q3W
     Route: 042
     Dates: start: 20170622, end: 20180524

REACTIONS (4)
  - Myasthenia gravis [Recovered/Resolved]
  - Liver injury [Recovered/Resolved]
  - Myocarditis [Recovered/Resolved]
  - Myositis [Recovered/Resolved]
